FAERS Safety Report 6560629-1 (Version None)
Quarter: 2010Q1

REPORT INFORMATION
  Report Type: 
  Country: None (occurrence: None)
  Receive Date: 20100129
  Receipt Date: 20050322
  Transmission Date: 20100710
  Serious: No
  Sender: FDA-Public Use
  Company Number: US-ALLERGAN-200502315

PATIENT
  Age: 43 Year
  Sex: Female
  Weight: 72.727 kg

DRUGS (1)
  1. BOTOX [Suspect]
     Indication: MUSCLE SPASMS
     Dosage: 100UNITS, PRN
     Route: 030

REACTIONS (2)
  - ALOPECIA [None]
  - RASH PRURITIC [None]
